FAERS Safety Report 6837560-7 (Version None)
Quarter: 2010Q3

REPORT INFORMATION
  Report Type: 
  Country: None (occurrence: None)
  Receive Date: 20100713
  Receipt Date: 20070517
  Transmission Date: 20110219
  Serious: No
  Sender: FDA-Public Use
  Company Number: US-PFIZER INC-2007040539

PATIENT
  Sex: Female
  Weight: 55.8 kg

DRUGS (3)
  1. CHANTIX [Suspect]
     Indication: SMOKING CESSATION THERAPY
     Dates: start: 20070509
  2. PRILOSEC [Concomitant]
  3. ATIVAN [Concomitant]

REACTIONS (10)
  - ABDOMINAL DISCOMFORT [None]
  - ABDOMINAL PAIN UPPER [None]
  - ABNORMAL DREAMS [None]
  - DIARRHOEA [None]
  - INFLUENZA [None]
  - INSOMNIA [None]
  - NAUSEA [None]
  - POSTURE ABNORMAL [None]
  - TINNITUS [None]
  - VOMITING [None]
